FAERS Safety Report 8904569 (Version 1)
Quarter: 2012Q4

REPORT INFORMATION
  Report Type: 
  Country: CA (occurrence: CA)
  Receive Date: 20121113
  Receipt Date: 20121113
  Transmission Date: 20130627
  Serious: Yes (Hospitalization)
  Sender: FDA-Public Use
  Company Number: PHBS2001CA07821

PATIENT
  Age: 84 Year
  Sex: Male

DRUGS (5)
  1. EXELON [Suspect]
     Dosage: 4.5 mg, BID
     Route: 048
     Dates: start: 20010428
  2. EXELON [Suspect]
     Dosage: 4.5 mg, BID
     Route: 048
     Dates: start: 20010629
  3. CITALOPRAM [Concomitant]
     Indication: DEPRESSION NEC
     Dates: start: 20010802
  4. SINEMET [Concomitant]
  5. HUMULIN 30/70 [Concomitant]

REACTIONS (6)
  - Gait disturbance [Recovered/Resolved]
  - Fall [Recovered/Resolved]
  - Urinary incontinence [Recovered/Resolved]
  - Confusional state [Recovered/Resolved]
  - Salivary hypersecretion [Not Recovered/Not Resolved]
  - Decreased appetite [Not Recovered/Not Resolved]
